FAERS Safety Report 17027281 (Version 3)
Quarter: 2020Q1

REPORT INFORMATION
  Report Type: Report from Study
  Country: DE (occurrence: DE)
  Receive Date: 20191113
  Receipt Date: 20200204
  Transmission Date: 20200409
  Serious: Yes (Life-Threatening, Hospitalization, Other)
  Sender: FDA-Public Use
  Company Number: DE-SEATTLE GENETICS-2019SGN03975

PATIENT

DRUGS (8)
  1. DOXORUBICIN [Suspect]
     Active Substance: DOXORUBICIN
     Indication: HODGKIN^S DISEASE
     Dosage: 40 MILLIGRAM/KILOGRAM
     Route: 065
     Dates: start: 20191023
  2. CYCLOPHOSPHAMIDE. [Suspect]
     Active Substance: CYCLOPHOSPHAMIDE
     Indication: HODGKIN^S DISEASE
     Dosage: 1250 MILLIGRAM/SQ. METER
     Route: 065
     Dates: start: 20191023
  3. DACARBAZINE. [Suspect]
     Active Substance: DACARBAZINE
     Indication: HODGKIN^S DISEASE
     Dosage: 250 MILLIGRAM
     Route: 065
     Dates: start: 20191024
  4. BRENTUXIMAB VEDOTIN-MPI [Suspect]
     Active Substance: BRENTUXIMAB VEDOTIN
     Indication: HODGKIN^S DISEASE
     Dosage: 1.8 MILLIGRAM/KILOGRAM
     Route: 065
     Dates: start: 20191022
  5. ETOPOSIDE. [Suspect]
     Active Substance: ETOPOSIDE
     Indication: HODGKIN^S DISEASE
     Dosage: 150 MILLIGRAM
     Route: 065
     Dates: start: 20191023
  6. DEXAMETHASONE. [Suspect]
     Active Substance: DEXAMETHASONE
     Indication: HODGKIN^S DISEASE
     Dosage: 40 MILLIGRAM
     Route: 065
     Dates: start: 20191023
  7. TRAMOL                             /00020001/ [Concomitant]
     Dosage: 100 GRAM
     Route: 065
  8. COTRIMOXAZOLE [Concomitant]
     Active Substance: SULFAMETHOXAZOLE\TRIMETHOPRIM
     Dosage: 960 MILLIGRAM, 3/WEEK
     Route: 065
     Dates: start: 20191026

REACTIONS (7)
  - Escherichia infection [Recovered/Resolved]
  - Leukopenia [Recovered/Resolved]
  - Cardiovascular insufficiency [Recovered/Resolved]
  - Thrombocytopenia [Recovered/Resolved]
  - Haematoma [Recovered/Resolved]
  - Sepsis [Recovered/Resolved]
  - Febrile neutropenia [Recovered/Resolved]

NARRATIVE: CASE EVENT DATE: 20191103
